FAERS Safety Report 14351934 (Version 2)
Quarter: 2018Q1

REPORT INFORMATION
  Report Type: Spontaneous
  Country: JP (occurrence: JP)
  Receive Date: 20180104
  Receipt Date: 20180126
  Transmission Date: 20180509
  Serious: Yes (Death)
  Sender: FDA-Public Use
  Company Number: JP-NAPPMUNDI-GBR-2017-0051890

PATIENT
  Sex: Male

DRUGS (2)
  1. OXIFAST [Suspect]
     Active Substance: OXYCODONE
     Indication: CANCER PAIN
     Dosage: 8 MG, DAILY
     Route: 041
     Dates: start: 201711, end: 20171220
  2. OXIFAST [Suspect]
     Active Substance: OXYCODONE
     Dosage: UNK
     Route: 041
     Dates: start: 201710

REACTIONS (1)
  - Neoplasm malignant [Fatal]

NARRATIVE: CASE EVENT DATE: 20171220
